FAERS Safety Report 10231122 (Version 1)
Quarter: 2014Q2

REPORT INFORMATION
  Report Type: Spontaneous
  Country: US (occurrence: US)
  Receive Date: 20140611
  Receipt Date: 20140611
  Transmission Date: 20141212
  Serious: No
  Sender: FDA-Public Use
  Company Number: US-GILEAD-2014-0104989

PATIENT
  Age: 67 Year
  Sex: Female

DRUGS (13)
  1. LETAIRIS [Suspect]
     Indication: PULMONARY ARTERIAL HYPERTENSION
     Dosage: 10 MG, QD
     Route: 065
     Dates: start: 20121117
  2. VENTAVIS [Suspect]
     Indication: PRODUCT USED FOR UNKNOWN INDICATION
     Route: 065
  3. ADCIRCA [Suspect]
     Indication: PRODUCT USED FOR UNKNOWN INDICATION
     Route: 065
  4. COUMADIN                           /00014802/ [Suspect]
     Indication: PRODUCT USED FOR UNKNOWN INDICATION
     Dosage: UNK
     Route: 065
     Dates: end: 20140605
  5. CYTOMEL [Concomitant]
  6. POTASSIUM [Concomitant]
  7. LASIX                              /00032601/ [Concomitant]
  8. RESTASIS [Concomitant]
  9. SYNTHROID [Concomitant]
  10. NEXIUM                             /01479302/ [Concomitant]
  11. FISH OIL [Concomitant]
  12. MIRALAX                            /00754501/ [Concomitant]
  13. TRIAMTERENE/HCTZ [Concomitant]

REACTIONS (2)
  - Epistaxis [Recovered/Resolved]
  - Nasal congestion [Unknown]
